FAERS Safety Report 9348299 (Version 2)
Quarter: 2013Q3

REPORT INFORMATION
  Report Type: Spontaneous
  Country: GB (occurrence: GB)
  Receive Date: 20130614
  Receipt Date: 20130829
  Transmission Date: 20140515
  Serious: Yes (Disabling)
  Sender: FDA-Public Use
  Company Number: GB-PFIZER INC-2013174995

PATIENT
  Age: 63 Year
  Sex: Male
  Weight: 80 kg

DRUGS (10)
  1. SUTENT [Suspect]
     Indication: METASTATIC RENAL CELL CARCINOMA
     Dosage: 37.5 MG, 1X/DAY
     Route: 048
     Dates: start: 201102
  2. PERINDOPRIL [Concomitant]
     Indication: BLOOD PRESSURE
     Dosage: 2 MG, 1X/DAY
     Route: 048
     Dates: start: 201008
  3. PERINDOPRIL [Concomitant]
     Indication: MYOCARDIAL INFARCTION
  4. BISOPROLOL [Concomitant]
     Indication: BLOOD PRESSURE
     Dosage: 2.5 MG, 1X/DAY
     Route: 048
     Dates: start: 201008
  5. BISOPROLOL [Concomitant]
     Indication: MYOCARDIAL INFARCTION
  6. ASPIRIN [Concomitant]
     Indication: PLATELET DISORDER
     Dosage: 75 MG, 1X/DAY
     Dates: start: 201008
  7. ASPIRIN [Concomitant]
     Indication: CARDIAC DISORDER
  8. ASPIRIN [Concomitant]
     Indication: MYOCARDIAL INFARCTION
  9. CONTIFLO XL [Concomitant]
     Indication: URINE FLOW DECREASED
     Dosage: 400 MG, 1X/DAY
     Route: 048
     Dates: start: 201010
  10. CONTIFLO XL [Concomitant]
     Indication: URETHRAL STENOSIS

REACTIONS (12)
  - Malaise [Recovered/Resolved]
  - Vomiting [Recovered/Resolved]
  - Epistaxis [Recovered/Resolved]
  - Palmar-plantar erythrodysaesthesia syndrome [Recovered/Resolved]
  - Purpura [Recovered/Resolved]
  - Influenza like illness [Recovered/Resolved]
  - Proctalgia [Recovered/Resolved]
  - Hypertension [Recovered/Resolved]
  - Fatigue [Recovered/Resolved]
  - Myalgia [Recovered/Resolved]
  - Diarrhoea [Recovered/Resolved]
  - Nausea [Recovered/Resolved]
